FAERS Safety Report 6774350-8 (Version None)
Quarter: 2010Q2

REPORT INFORMATION
  Report Type: 
  Country: None (occurrence: None)
  Receive Date: 20100617
  Receipt Date: 20100607
  Transmission Date: 20101027
  Serious: Yes (Hospitalization, Other)
  Sender: FDA-Public Use
  Company Number: FR-JNJFOC-20100604718

PATIENT
  Age: 70 Year
  Sex: Male

DRUGS (5)
  1. LOPERAMIDE HCL [Suspect]
     Indication: ILL-DEFINED DISORDER
     Route: 048
  2. TAHOR [Suspect]
     Indication: ILL-DEFINED DISORDER
     Route: 048
  3. FORTZAAR [Suspect]
     Indication: ILL-DEFINED DISORDER
     Route: 048
  4. FELODIPINE WITH METOPROLOL [Suspect]
     Indication: ILL-DEFINED DISORDER
     Dosage: 5 MG/47.5 MG COATED PROLONGED RELEASE
     Route: 048
  5. TIORFAN [Suspect]
     Indication: ILL-DEFINED DISORDER
     Route: 048

REACTIONS (4)
  - DIARRHOEA INFECTIOUS [None]
  - HAEMORRHAGIC FEVER [None]
  - HEPATITIS [None]
  - RENAL FAILURE ACUTE [None]
